FAERS Safety Report 11856348 (Version 1)
Quarter: 2015Q4

REPORT INFORMATION
  Report Type: Spontaneous
  Country: BR (occurrence: BR)
  Receive Date: 20151221
  Receipt Date: 20151221
  Transmission Date: 20160305
  Serious: Yes (Hospitalization)
  Sender: FDA-Public Use
  Company Number: BR-COVIS PHARMA S.A.R.L.-2015COV00151

PATIENT

DRUGS (1)
  1. RILUTEK [Suspect]
     Active Substance: RILUZOLE
     Dosage: 50 MG, UNK

REACTIONS (1)
  - Hospitalisation [Unknown]
